FAERS Safety Report 7781123-6 (Version None)
Quarter: 2011Q3

REPORT INFORMATION
  Report Type: 
  Country: None (occurrence: None)
  Receive Date: 20110927
  Receipt Date: 20110923
  Transmission Date: 20111222
  Serious: Yes (Life-Threatening, Other)
  Sender: FDA-Public Use
  Company Number: PHHY2011CA72207

PATIENT
  Sex: Female

DRUGS (5)
  1. ACTONEL [Suspect]
     Dosage: UNK UKN, UNK
     Dates: start: 20110808
  2. ZOLEDRONOC ACID [Suspect]
     Dosage: 5 MG, UNK
     Dates: start: 20110912
  3. ZOLEDRONOC ACID [Suspect]
     Dosage: 5 MG, UNK
     Route: 042
     Dates: start: 20090824
  4. ZOLEDRONOC ACID [Suspect]
     Dosage: 5 MG, UNK
     Route: 042
     Dates: start: 20100830
  5. ZOLEDRONOC ACID [Suspect]
     Indication: OSTEOPOROSIS
     Dosage: 5 MG, UNK
     Route: 042
     Dates: start: 20080813

REACTIONS (8)
  - VISUAL IMPAIRMENT [None]
  - MALAISE [None]
  - TOOTHACHE [None]
  - EYE PAIN [None]
  - ASTHENIA [None]
  - FEELING ABNORMAL [None]
  - HEADACHE [None]
  - ANGINA PECTORIS [None]
